FAERS Safety Report 17537839 (Version 1)
Quarter: 2020Q1

REPORT INFORMATION
  Report Type: Spontaneous
  Country: US (occurrence: US)
  Receive Date: 20200312
  Receipt Date: 20200312
  Transmission Date: 20200409
  Serious: Yes (Hospitalization)
  Sender: FDA-Public Use
  Company Number: None

PATIENT
  Age: 52 Year
  Sex: Male

DRUGS (13)
  1. PANTOPRAZOLE [Concomitant]
     Active Substance: PANTOPRAZOLE
  2. OXYCODONE AND ACETAMINOPHEN [Concomitant]
     Active Substance: ACETAMINOPHEN\OXYCODONE HYDROCHLORIDE
  3. BUMETADINE [Concomitant]
     Active Substance: BUMETANIDE
  4. AMLODIPINE [Concomitant]
     Active Substance: AMLODIPINE BESYLATE
  5. HUMIRA [Concomitant]
     Active Substance: ADALIMUMAB
  6. METOPROL TAR [Concomitant]
  7. HUMIRA [Suspect]
     Active Substance: ADALIMUMAB
     Indication: PRODUCT USED FOR UNKNOWN INDICATION
     Dosage: ?          OTHER FREQUENCY:EVERY 2 WEEKS;?
     Route: 058
     Dates: start: 20190513
  8. PREDNISONE. [Concomitant]
     Active Substance: PREDNISONE
  9. COLCHICINE. [Concomitant]
     Active Substance: COLCHICINE
  10. DOXYCYCL HYC [Concomitant]
  11. DICLOFENAC [Concomitant]
     Active Substance: DICLOFENAC
  12. VALSART/HCTZ [Concomitant]
  13. ALLOPURINOL. [Concomitant]
     Active Substance: ALLOPURINOL

REACTIONS (3)
  - Arthralgia [None]
  - Joint swelling [None]
  - Condition aggravated [None]

NARRATIVE: CASE EVENT DATE: 20200302
